FAERS Safety Report 9140915 (Version 1)
Quarter: 2013Q1

REPORT INFORMATION
  Report Type: Spontaneous
  Country: US (occurrence: US)
  Receive Date: 20130305
  Receipt Date: 20130305
  Transmission Date: 20140127
  Serious: Yes (Hospitalization)
  Sender: FDA-Public Use
  Company Number: US-PFIZER INC-2013073083

PATIENT
  Age: 40 Year
  Sex: Male
  Weight: 154 kg

DRUGS (2)
  1. JUNIOR STRENGTH ADVIL [Suspect]
     Dosage: 100 MG, SINGLE
     Route: 048
     Dates: start: 20130226
  2. ZOLOFT [Concomitant]
     Indication: DEPRESSION
     Dosage: UNK, 1X/DAY
     Route: 048

REACTIONS (9)
  - Drug administered to patient of inappropriate age [Unknown]
  - Oral discomfort [Unknown]
  - Vomiting [Unknown]
  - Tremor [Unknown]
  - Abdominal pain upper [Unknown]
  - Dysgeusia [Unknown]
  - Nausea [Unknown]
  - Abdominal discomfort [Unknown]
  - Retching [Unknown]
